FAERS Safety Report 7846634-3 (Version None)
Quarter: 2011Q4

REPORT INFORMATION
  Report Type: 
  Country: None (occurrence: None)
  Receive Date: 20111025
  Receipt Date: 20111017
  Transmission Date: 20120403
  Serious: Yes (Other)
  Sender: FDA-Public Use
  Company Number: PHEH2011US05433

PATIENT
  Sex: Male
  Weight: 79 kg

DRUGS (11)
  1. COLACE [Concomitant]
     Dosage: UNK UKN, UNK
  2. ATENOLOL [Concomitant]
     Dosage: 50 MG, UNK
  3. PEPCID [Concomitant]
     Dosage: 28 MG, UNK
  4. PROGRAF [Concomitant]
     Dosage: 2.5 MG IN MORNING AND 2 MG AT NIGHT
  5. CALCIUM CARBONATE [Concomitant]
     Dosage: UNK UKN, UNK
  6. SODIUM PHOSPHATE [Concomitant]
     Dosage: BID
  7. MYFORTIC [Suspect]
     Indication: RENAL TRANSPLANT
     Dosage: 360 MG, BID
     Route: 048
  8. VITAMIN D [Concomitant]
     Dosage: (600/200 MG) DAILY
  9. BACTRIM DS [Concomitant]
     Dosage: UNK UKN, UNK
  10. MAGNESIUM OXIDE [Concomitant]
     Dosage: 400 MG (2 PILLS IN MORNING AND 1 AT NIGHT)
  11. PREDNISONE [Concomitant]
     Dosage: 5 MG, UNK

REACTIONS (2)
  - POST PROCEDURAL COMPLICATION [None]
  - RETROPERITONEAL HAEMORRHAGE [None]
